FAERS Safety Report 20784073 (Version 1)
Quarter: 2022Q2

REPORT INFORMATION
  Report Type: Spontaneous
  Country: US (occurrence: None)
  Receive Date: 20220504
  Receipt Date: 20220504
  Transmission Date: 20220720
  Serious: Yes (Hospitalization)
  Sender: FDA-Public Use
  Company Number: 2022A164928

PATIENT
  Age: 71 Year
  Sex: Female

DRUGS (6)
  1. FASLODEX [Suspect]
     Active Substance: FULVESTRANT
     Indication: Blood oestrogen increased
     Dosage: 250MG 1 INJECTION EACH BUTTOCK
     Route: 030
     Dates: start: 2021
  2. FASLODEX [Suspect]
     Active Substance: FULVESTRANT
     Indication: Metastases to bone
     Dosage: 250MG 1 INJECTION EACH BUTTOCK
     Route: 030
     Dates: start: 2021
  3. FASLODEX [Suspect]
     Active Substance: FULVESTRANT
     Indication: HER2 positive breast cancer
     Dosage: 250MG 1 INJECTION EACH BUTTOCK
     Route: 030
     Dates: start: 2021
  4. FASLODEX [Suspect]
     Active Substance: FULVESTRANT
     Indication: Blood oestrogen increased
     Dosage: 250MG 1 INJECTION IN THE LEFT BUTTOCKS 2 WEEKS AGO
     Route: 030
  5. FASLODEX [Suspect]
     Active Substance: FULVESTRANT
     Indication: Metastases to bone
     Dosage: 250MG 1 INJECTION IN THE LEFT BUTTOCKS 2 WEEKS AGO
     Route: 030
  6. FASLODEX [Suspect]
     Active Substance: FULVESTRANT
     Indication: HER2 positive breast cancer
     Dosage: 250MG 1 INJECTION IN THE LEFT BUTTOCKS 2 WEEKS AGO
     Route: 030

REACTIONS (16)
  - Hip fracture [Recovering/Resolving]
  - Blood oestrogen increased [Unknown]
  - Pain [Unknown]
  - Cough [Not Recovered/Not Resolved]
  - Dyspnoea [Not Recovered/Not Resolved]
  - Insomnia [Not Recovered/Not Resolved]
  - Ocular discomfort [Not Recovered/Not Resolved]
  - Eye pain [Not Recovered/Not Resolved]
  - Chest pain [Not Recovered/Not Resolved]
  - Bone pain [Not Recovered/Not Resolved]
  - Mobility decreased [Not Recovered/Not Resolved]
  - Headache [Not Recovered/Not Resolved]
  - Nausea [Not Recovered/Not Resolved]
  - Decreased appetite [Not Recovered/Not Resolved]
  - Myalgia [Not Recovered/Not Resolved]
  - Product use issue [Unknown]

NARRATIVE: CASE EVENT DATE: 20210101
